FAERS Safety Report 25713730 (Version 1)
Quarter: 2025Q3

REPORT INFORMATION
  Report Type: Spontaneous
  Country: US (occurrence: US)
  Receive Date: 20250822
  Receipt Date: 20250822
  Transmission Date: 20251020
  Serious: No
  Sender: MANKIND PHARMA
  Company Number: US-MankindUS-000397

PATIENT
  Sex: Male

DRUGS (1)
  1. VARENICLINE TARTRATE [Suspect]
     Active Substance: VARENICLINE TARTRATE
     Indication: Smoking cessation therapy

REACTIONS (4)
  - Pollakiuria [Unknown]
  - Insomnia [Unknown]
  - Drug ineffective [Unknown]
  - Product substitution issue [Unknown]
